FAERS Safety Report 18210394 (Version 14)
Quarter: 2025Q1

REPORT INFORMATION
  Report Type: Report from Study
  Country: US (occurrence: US)
  Receive Date: 20200829
  Receipt Date: 20250305
  Transmission Date: 20250408
  Serious: Yes (Other)
  Sender: TAKEDA
  Company Number: US-SHIRE-US202027894

PATIENT
  Age: 74 Year
  Sex: Female
  Weight: 53 kg

DRUGS (28)
  1. HUMAN IMMUNOGLOBULIN G\HYALURONIDASE RECOMBINANT HUMAN [Suspect]
     Active Substance: HUMAN IMMUNOGLOBULIN G\HYALURONIDASE (HUMAN RECOMBINANT)
     Indication: Primary immunodeficiency syndrome
     Dosage: 25 GRAM, Q4WEEKS
     Dates: start: 20151116
  2. HUMAN IMMUNOGLOBULIN G\HYALURONIDASE RECOMBINANT HUMAN [Suspect]
     Active Substance: HUMAN IMMUNOGLOBULIN G\HYALURONIDASE (HUMAN RECOMBINANT)
     Indication: Immunodeficiency common variable
  3. HUMAN IMMUNOGLOBULIN G\HYALURONIDASE RECOMBINANT HUMAN [Suspect]
     Active Substance: HUMAN IMMUNOGLOBULIN G\HYALURONIDASE (HUMAN RECOMBINANT)
     Dosage: 25 GRAM, Q4WEEKS
  4. DIPHENHYDRAMINE [Concomitant]
     Active Substance: DIPHENHYDRAMINE
     Indication: Product used for unknown indication
  5. EPINEPHRINE [Concomitant]
     Active Substance: EPINEPHRINE
     Indication: Product used for unknown indication
  6. FLUTICASONE PROPIONATE [Concomitant]
     Active Substance: FLUTICASONE PROPIONATE
  7. PROLIA [Concomitant]
     Active Substance: DENOSUMAB
  8. MELATONIN [Concomitant]
     Active Substance: MELATONIN
  9. MAGNESIUM CITRATE [Concomitant]
     Active Substance: MAGNESIUM CITRATE
     Indication: Product used for unknown indication
  10. ACETAMINOPHEN [Concomitant]
     Active Substance: ACETAMINOPHEN
     Indication: Product used for unknown indication
  11. CALCIUM [Concomitant]
     Active Substance: CALCIUM
  12. XARELTO [Concomitant]
     Active Substance: RIVAROXABAN
     Indication: Product used for unknown indication
  13. L Theanine [Concomitant]
  14. DIETARY SUPPLEMENT [Concomitant]
     Active Substance: DIETARY SUPPLEMENT
     Indication: Product used for unknown indication
  15. CITRUCEL [Concomitant]
     Active Substance: METHYLCELLULOSE (4000 CPS)
  16. VITAMIN B [Concomitant]
     Active Substance: VITAMIN B
  17. VITAMIN D3 [Concomitant]
     Active Substance: CHOLECALCIFEROL
     Indication: Product used for unknown indication
  18. VITAMIN B12 [Concomitant]
     Active Substance: CYANOCOBALAMIN
  19. HERBALS\TURMERIC [Concomitant]
     Active Substance: HERBALS\TURMERIC
     Indication: Product used for unknown indication
  20. LEXAPRO [Concomitant]
     Active Substance: ESCITALOPRAM OXALATE
     Indication: Product used for unknown indication
  21. COENZYME Q10 [Concomitant]
     Active Substance: DIETARY SUPPLEMENT\UBIDECARENONE
  22. CARVEDILOL [Concomitant]
     Active Substance: CARVEDILOL
  23. SODIUM CHLORIDE [Concomitant]
     Active Substance: SODIUM CHLORIDE
  24. NEBIVOLOL [Concomitant]
     Active Substance: NEBIVOLOL
  25. STOOL SOFTENER (DOCUSATE) [Concomitant]
     Active Substance: DOCUSATE
  26. CALCIUM\CHOLECALCIFEROL [Concomitant]
     Active Substance: CALCIUM\CHOLECALCIFEROL
  27. DIPHENHYDRAMINE HYDROCHLORIDE [Concomitant]
     Active Substance: DIPHENHYDRAMINE HYDROCHLORIDE
  28. TYLENOL EXTRA STRENGTH [Concomitant]
     Active Substance: ACETAMINOPHEN

REACTIONS (16)
  - Atrial fibrillation [Not Recovered/Not Resolved]
  - Device loosening [Unknown]
  - Vulvovaginal mycotic infection [Unknown]
  - Seasonal allergy [Not Recovered/Not Resolved]
  - Skin injury [Unknown]
  - Illness [Unknown]
  - Arthropod bite [Unknown]
  - Dry eye [Unknown]
  - Nasopharyngitis [Unknown]
  - Salivary gland disorder [Unknown]
  - Arthralgia [Unknown]
  - Blood pressure increased [Unknown]
  - Rash [Unknown]
  - Infusion site extravasation [Unknown]
  - Infusion site erythema [Unknown]
  - Infusion site haemorrhage [Unknown]

NARRATIVE: CASE EVENT DATE: 20220223
